FAERS Safety Report 25981922 (Version 1)
Quarter: 2025Q4

REPORT INFORMATION
  Report Type: Report from Study
  Country: US (occurrence: US)
  Receive Date: 20251031
  Receipt Date: 20251031
  Transmission Date: 20260118
  Serious: Yes (Other)
  Sender: CSL BEHRING
  Company Number: US-BEH-2025223356

PATIENT
  Sex: Female
  Weight: 97.506 kg

DRUGS (1)
  1. HIZENTRA [Suspect]
     Active Substance: HUMAN IMMUNOGLOBULIN G
     Indication: Chronic inflammatory demyelinating polyradiculoneuropathy
     Dosage: 35 G, QW
     Route: 058
     Dates: start: 202504

REACTIONS (10)
  - Chronic inflammatory demyelinating polyradiculoneuropathy [Unknown]
  - Muscular weakness [Unknown]
  - Limb discomfort [Unknown]
  - Muscular weakness [Unknown]
  - Hypoaesthesia [Unknown]
  - Burning sensation [Unknown]
  - Electric shock sensation [Unknown]
  - Balance disorder [Unknown]
  - Loss of personal independence in daily activities [Unknown]
  - Infusion site reaction [Unknown]
